FAERS Safety Report 9344398 (Version 3)
Quarter: 2013Q3

REPORT INFORMATION
  Report Type: Report from Study
  Country: JP (occurrence: JP)
  Receive Date: 20130612
  Receipt Date: 20130918
  Transmission Date: 20140515
  Serious: Yes (Other)
  Sender: FDA-Public Use
  Company Number: JP-JNJFOC-20130516196

PATIENT
  Age: 81 Year
  Sex: Female
  Weight: 48 kg

DRUGS (7)
  1. SIMPONI [Suspect]
     Indication: RHEUMATOID ARTHRITIS
     Route: 058
     Dates: start: 20120706, end: 20120928
  2. PREDNISOLONE [Concomitant]
     Indication: RHEUMATOID ARTHRITIS
     Route: 048
  3. CELECOX [Concomitant]
     Indication: RHEUMATOID ARTHRITIS
     Route: 048
  4. ALLELOCK [Concomitant]
     Indication: DERMATITIS ALLERGIC
     Route: 048
  5. NORVASC [Concomitant]
     Indication: HYPERTENSION
     Route: 048
  6. EVISTA [Concomitant]
     Indication: OSTEOPOROSIS
     Route: 048
  7. GASLON N [Concomitant]
     Indication: PROPHYLAXIS
     Route: 048

REACTIONS (1)
  - Interstitial lung disease [Recovered/Resolved]
